FAERS Safety Report 7802306-2 (Version None)
Quarter: 2011Q4

REPORT INFORMATION
  Report Type: 
  Country: None (occurrence: None)
  Receive Date: 20111005
  Receipt Date: 20110916
  Transmission Date: 20120403
  Serious: Yes (Hospitalization, Other)
  Sender: FDA-Public Use
  Company Number: JPI-P-002733

PATIENT
  Age: 58 Year
  Sex: Male

DRUGS (1)
  1. XYREM [Suspect]
     Indication: NARCOLEPSY
     Dosage: 4.5 GM (2.25 GM, 2 IN 1 D), ORAL
     Route: 048
     Dates: start: 20071019, end: 20071031

REACTIONS (19)
  - CONFUSIONAL STATE [None]
  - SOMNAMBULISM [None]
  - HYPNAGOGIC HALLUCINATION [None]
  - ANGINA PECTORIS [None]
  - AGITATION [None]
  - DISORIENTATION [None]
  - ANXIETY [None]
  - HALLUCINATION [None]
  - TERMINAL INSOMNIA [None]
  - FATIGUE [None]
  - MEMORY IMPAIRMENT [None]
  - MALAISE [None]
  - HYPERHIDROSIS [None]
  - HOT FLUSH [None]
  - DRUG INEFFECTIVE [None]
  - IRRITABILITY [None]
  - DEPRESSION [None]
  - SLEEP PARALYSIS [None]
  - CORONARY ARTERY STENOSIS [None]
